FAERS Safety Report 5941315-5 (Version None)
Quarter: 2008Q4

REPORT INFORMATION
  Report Type: 
  Country: None (occurrence: None)
  Receive Date: 20081103
  Receipt Date: 20081103
  Transmission Date: 20090506
  Serious: Yes (Life-Threatening, Disabling)
  Sender: FDA-Public Use
  Company Number: None

PATIENT
  Age: 69 Year
  Sex: Male
  Weight: 78.0187 kg

DRUGS (1)
  1. LIPITOR [Suspect]
     Indication: BLOOD CHOLESTEROL INCREASED
     Dosage: ONE ONCE PER DAY PO
     Route: 048
     Dates: start: 20000101, end: 20080101

REACTIONS (9)
  - ANOREXIA [None]
  - ASTHENIA [None]
  - BEDRIDDEN [None]
  - DEATH OF RELATIVE [None]
  - DECREASED APPETITE [None]
  - GENERAL PHYSICAL HEALTH DETERIORATION [None]
  - JOINT LOCK [None]
  - MYALGIA [None]
  - PAIN IN EXTREMITY [None]
